FAERS Safety Report 8763424 (Version 1)
Quarter: 2012Q4

REPORT INFORMATION
  Report Type: 
  Country: FR (occurrence: FR)
  Receive Date: 20120831
  Receipt Date: 20120831
  Transmission Date: 20130627
  Serious: Yes (Hospitalization)
  Sender: FDA-Public Use
  Company Number: FR-009507513-1208FRA008944

PATIENT

DRUGS (3)
  1. VICTRELIS [Suspect]
     Indication: HEPATITIS C VIRUS TEST POSITIVE
     Dosage: 800 mg, tid
     Route: 048
     Dates: start: 20120426, end: 20120523
  2. PEGASYS [Suspect]
     Indication: HEPATITIS C VIRUS TEST POSITIVE
     Dosage: UNK
     Route: 042
     Dates: start: 20120327, end: 20120523
  3. COPEGUS [Suspect]
     Indication: HEPATITIS C VIRUS TEST POSITIVE
     Dosage: UNK
     Route: 048
     Dates: start: 20120327, end: 20120523

REACTIONS (3)
  - Eczema [Recovering/Resolving]
  - Anaemia [Not Recovered/Not Resolved]
  - Thrombocytopenia [Not Recovered/Not Resolved]
